FAERS Safety Report 7301091-0 (Version None)
Quarter: 2011Q1

REPORT INFORMATION
  Report Type: 
  Country: None (occurrence: None)
  Receive Date: 20110218
  Receipt Date: 20110214
  Transmission Date: 20110831
  Serious: Yes (Hospitalization, Other)
  Sender: FDA-Public Use
  Company Number: AU-BRISTOL-MYERS SQUIBB COMPANY-15546930

PATIENT
  Age: 45 Year
  Sex: Female

DRUGS (2)
  1. ZIPRASIDONE [Suspect]
     Dates: end: 20110101
  2. ABILIFY [Suspect]
     Dosage: REDUCED TO 60MG/DAY
     Dates: start: 20101001

REACTIONS (2)
  - OVERDOSE [None]
  - GENERALISED OEDEMA [None]
